FAERS Safety Report 5145805-7 (Version None)
Quarter: 2006Q4

REPORT INFORMATION
  Report Type: 
  Country: None (occurrence: None)
  Receive Date: 20061108
  Receipt Date: 20061030
  Transmission Date: 20070319
  Serious: Yes (Hospitalization)
  Sender: FDA-Public Use
  Company Number: SE-JNJFOC-20061100304

PATIENT
  Age: 61 Year
  Sex: Female

DRUGS (5)
  1. REMICADE [Suspect]
     Indication: RHEUMATOID ARTHRITIS
     Route: 042
  2. METHOTREXATE [Concomitant]
     Route: 065
  3. CITODON [Concomitant]
     Dosage: 1.0-1.5G DAILY
     Route: 065
  4. NAPROXEN [Concomitant]
     Dosage: 0.5-1.0G DAILY
     Route: 065
  5. FOLACIN [Concomitant]
     Route: 065

REACTIONS (2)
  - JOINT SWELLING [None]
  - SEPSIS [None]
